FAERS Safety Report 8649650 (Version 2)
Quarter: 2012Q4

REPORT INFORMATION
  Report Type: 
  Country: GB (occurrence: GB)
  Receive Date: 20120705
  Receipt Date: 20121026
  Transmission Date: 20130627
  Serious: Yes (Other)
  Sender: FDA-Public Use
  Company Number: GB-CELGENEUS-167-21880-12050580

PATIENT
  Sex: Female

DRUGS (3)
  1. REVLIMID [Suspect]
     Indication: ACCIDENTAL EXPOSURE TO PRODUCT
     Route: 048
  2. INSULIN [Concomitant]
     Indication: GESTATIONAL DIABETES
     Route: 065
     Dates: start: 201206, end: 20120819
  3. METFORMIN [Concomitant]
     Indication: DRUG USE FOR UNKNOWN INDICATION
     Route: 065
     Dates: start: 201206, end: 20120819

REACTIONS (1)
  - Exposure during pregnancy [Unknown]
